FAERS Safety Report 4607271-7 (Version None)
Quarter: 2005Q1

REPORT INFORMATION
  Report Type: 
  Country: None (occurrence: None)
  Receive Date: 20050309
  Receipt Date: 20050224
  Transmission Date: 20050727
  Serious: Yes (Other)
  Sender: FDA-Public Use
  Company Number: HQWYE260711FEB05

PATIENT
  Age: 67 Year
  Sex: Female

DRUGS (4)
  1. TAZOCIN (PIPERACILLIN/TAZOBACTAM, I [Suspect]
     Indication: EXTRAVASATION
     Dosage: 4.5 G
  2. TAZOCIN (PIPERACILLIN/TAZOBACTAM, I [Suspect]
     Indication: LUNG INFILTRATION
     Dosage: 4.5 G
  3. AMIKACIN [Concomitant]
  4. KLACID (CLARITHROMYCIN) [Concomitant]

REACTIONS (7)
  - ACUTE GENERALISED EXANTHEMATOUS PUSTULOSIS [None]
  - BLOOD UREA INCREASED [None]
  - BODY TEMPERATURE INCREASED [None]
  - LEUKOCYTOSIS [None]
  - NEUTROPHILIA [None]
  - RED BLOOD CELL SEDIMENTATION RATE INCREASED [None]
  - TOXIC SKIN ERUPTION [None]
